FAERS Safety Report 9371457 (Version 1)
Quarter: 2013Q2

REPORT INFORMATION
  Report Type: Spontaneous
  Country: US (occurrence: US)
  Receive Date: 20130627
  Receipt Date: 20130627
  Transmission Date: 20140414
  Serious: Yes (Hospitalization)
  Sender: FDA-Public Use
  Company Number: US-SANOFI-AVENTIS-2013SA063809

PATIENT
  Sex: Male

DRUGS (3)
  1. LANTUS SOLOSTAR [Suspect]
     Dosage: FOR ABOUT AN YEAR DOSE:35 UNIT(S)
     Route: 051
  2. SOLOSTAR [Suspect]
  3. HUMULIN R [Suspect]

REACTIONS (2)
  - Localised infection [Unknown]
  - Blood glucose decreased [Unknown]
